FAERS Safety Report 16296174 (Version 2)
Quarter: 2019Q2

REPORT INFORMATION
  Report Type: Spontaneous
  Country: US (occurrence: US)
  Receive Date: 20190510
  Receipt Date: 20190605
  Transmission Date: 20190711
  Serious: No
  Sender: FDA-Public Use
  Company Number: US-PFIZER INC-2019194286

PATIENT
  Age: 69 Year
  Sex: Female
  Weight: 104 kg

DRUGS (1)
  1. XELJANZ XR [Suspect]
     Active Substance: TOFACITINIB CITRATE
     Indication: RHEUMATOID ARTHRITIS
     Dosage: 11 MG, DAILY
     Route: 048
     Dates: end: 201901

REACTIONS (2)
  - Peripheral swelling [Not Recovered/Not Resolved]
  - Peripheral swelling [Recovering/Resolving]
